FAERS Safety Report 18267297 (Version 1)
Quarter: 2020Q3

REPORT INFORMATION
  Report Type: Spontaneous
  Country: US (occurrence: US)
  Receive Date: 20200513
  Receipt Date: 20200513
  Transmission Date: 20201103
  Serious: Yes (Other)
  Sender: FDA-Public Use
  Company Number: None

PATIENT
  Age: 5 Decade
  Sex: Male

DRUGS (1)
  1. ATOMIZATION INHALATION HUMAN RECOMBINANT INTERFERON ANTIVIRAL THERAPY [INTERFERON ALFA?2B] [Suspect]
     Active Substance: INTERFERON ALFA-2B
     Indication: COVID-19
     Dosage: ?          OTHER ROUTE:INHALATION?
     Dates: start: 2020

REACTIONS (1)
  - Product use in unapproved indication [None]
